FAERS Safety Report 13173041 (Version 2)
Quarter: 2018Q1

REPORT INFORMATION
  Report Type: Spontaneous
  Country: US (occurrence: US)
  Receive Date: 20170201
  Receipt Date: 20180126
  Transmission Date: 20180508
  Serious: No
  Sender: FDA-Public Use
  Company Number: US-ABBVIE-16P-163-1608348-00

PATIENT

DRUGS (2)
  1. HUMIRA [Suspect]
     Active Substance: ADALIMUMAB
     Route: 058
  2. HUMIRA [Suspect]
     Active Substance: ADALIMUMAB
     Indication: PRODUCT USED FOR UNKNOWN INDICATION
     Route: 058

REACTIONS (11)
  - Chondropathy [Unknown]
  - Mobility decreased [Unknown]
  - Depressed mood [Unknown]
  - Fatigue [Unknown]
  - Pain [Recovering/Resolving]
  - Condition aggravated [Unknown]
  - Contusion [Recovered/Resolved]
  - Anger [Unknown]
  - Back disorder [Unknown]
  - Gait disturbance [Unknown]
  - Rheumatoid arthritis [Unknown]

NARRATIVE: CASE EVENT DATE: 2017
